FAERS Safety Report 5447915-3 (Version None)
Quarter: 2007Q3

REPORT INFORMATION
  Report Type: 
  Country: None (occurrence: None)
  Receive Date: 20070910
  Receipt Date: 20070829
  Transmission Date: 20080115
  Serious: Yes (Other)
  Sender: FDA-Public Use
  Company Number: CZ-PFIZER INC-2007073640

PATIENT
  Age: 42 Year
  Sex: Female

DRUGS (4)
  1. NEURONTIN [Suspect]
     Indication: EPILEPSY
     Route: 048
  2. NEUROTOP [Concomitant]
     Route: 048
  3. CITALOPRAM HYDROBROMIDE [Concomitant]
     Route: 048
  4. KEPPRA [Concomitant]
     Route: 048

REACTIONS (2)
  - DEPRESSION [None]
  - DRUG INEFFECTIVE [None]
